FAERS Safety Report 19804605 (Version 1)
Quarter: 2021Q3

REPORT INFORMATION
  Report Type: Spontaneous
  Country: GB (occurrence: GB)
  Receive Date: 20210908
  Receipt Date: 20210908
  Transmission Date: 20211014
  Serious: Yes (Hospitalization)
  Sender: FDA-Public Use
  Company Number: GB-MYLANLABS-2021M1058682

PATIENT
  Age: 70 Year
  Sex: Female

DRUGS (14)
  1. COCODAMOL [Concomitant]
     Active Substance: ACETAMINOPHEN\CODEINE PHOSPHATE
  2. INDAPAMIDE. [Suspect]
     Active Substance: INDAPAMIDE
     Indication: PRODUCT USED FOR UNKNOWN INDICATION
     Dosage: 2.5 MILLIGRAM, QD
  3. GABAPENTIN. [Concomitant]
     Active Substance: GABAPENTIN
     Dosage: 100 MILLIGRAM, PRN (PATIENT STATES TAKES 1 UP TO TDS)
  4. SALMETEROL/FLUTICASONPROPIONAAT [Concomitant]
     Active Substance: FLUTICASONE PROPIONATE\SALMETEROL XINAFOATE
     Dosage: FLUTICASONE PROPIONATE 500MICROGRAMS/DOSE / SALMETEROL 50MICROGRAMS/DOSE DRY POWDER INHALER
     Route: 055
  5. BECLOMETASONE [Concomitant]
     Active Substance: BECLOMETHASONE DIPROPIONATE
     Dosage: 50 MICROGRAM, PRN (ONE SPRAY TO BE USED IN EACH NOSTRIL BD)
     Route: 045
  6. SALBUTAMOL [Concomitant]
     Active Substance: ALBUTEROL
     Dosage: CFC FREE 1?2 PUFFS TO BE INHALED UP TO 3?4 TIMES A DAY WHEN REQUIRED FOR BREATHLESSNESS
     Route: 055
  7. ESCITALOPRAM [Concomitant]
     Active Substance: ESCITALOPRAM OXALATE
     Dosage: 20 MILLIGRAM, QD
  8. LANSOPRAZOLE. [Concomitant]
     Active Substance: LANSOPRAZOLE
     Dosage: 30 MILLIGRAM, QD
  9. SIMVASTATIN. [Concomitant]
     Active Substance: SIMVASTATIN
     Dosage: 40 MILLIGRAM, QD
  10. ZAPAIN [Concomitant]
     Active Substance: ACETAMINOPHEN\CODEINE PHOSPHATE
     Dosage: 30MG/500MG ONE TO BE TAKEN FOUR TIMES A DAY?PT TAKES PRN
  11. CHLORPROMAZINE. [Concomitant]
     Active Substance: CHLORPROMAZINE
     Dosage: 25 MILLIGRAM, BID
  12. EVACAL D3 [Concomitant]
     Dosage: 1 DOSAGE FORM, BID (1500MG/400UNIT)
  13. MIRTAZAPINE. [Concomitant]
     Active Substance: MIRTAZAPINE
     Dosage: 15 MILLIGRAM, QD
  14. DICLOFENAC [Concomitant]
     Active Substance: DICLOFENAC
     Dosage: 100 GRAM, PRN (APPLY 3 TIMES A DAY WITH GENTLE MASSAGE USES PRN ON KNEES)

REACTIONS (3)
  - Depressed level of consciousness [Unknown]
  - Cardiac dysfunction [Unknown]
  - Hypokalaemia [Unknown]

NARRATIVE: CASE EVENT DATE: 20210427
